FAERS Safety Report 10029371 (Version 1)
Quarter: 2014Q1

REPORT INFORMATION
  Report Type: Spontaneous
  Country: GB (occurrence: GB)
  Receive Date: 20140322
  Receipt Date: 20140322
  Transmission Date: 20141002
  Serious: Yes (Other)
  Sender: FDA-Public Use
  Company Number: PHFR2014GB002065

PATIENT
  Age: 35 Year
  Sex: Female

DRUGS (3)
  1. CARBAMAZEPINE [Suspect]
     Indication: AFFECT LABILITY
     Dosage: 300 MG, BID
     Dates: start: 20121219
  2. VALDOXAN [Suspect]
     Indication: DEPRESSION
     Dosage: 50 MG, BID
     Dates: start: 20120206
  3. VALDOXAN [Suspect]
     Indication: PERSONALITY DISORDER
     Dosage: 25 MG, BID

REACTIONS (3)
  - Neutropenia [Not Recovered/Not Resolved]
  - Leukopenia [Not Recovered/Not Resolved]
  - Prescribed overdose [Recovered/Resolved]
